FAERS Safety Report 9677431 (Version 1)
Quarter: 2013Q4

REPORT INFORMATION
  Report Type: Spontaneous
  Country: US (occurrence: US)
  Receive Date: 20131108
  Receipt Date: 20131108
  Transmission Date: 20140711
  Serious: No
  Sender: FDA-Public Use
  Company Number: US-ENDO PHARMACEUTICALS INC.-PERP20120001

PATIENT
  Sex: Male

DRUGS (1)
  1. PERPHENAZINE TABLETS 8MG [Suspect]
     Indication: PRODUCT USED FOR UNKNOWN INDICATION
     Route: 048
     Dates: start: 201201, end: 2012

REACTIONS (2)
  - Injury [Unknown]
  - Dyskinesia [Unknown]
